FAERS Safety Report 13536963 (Version 3)
Quarter: 2017Q3

REPORT INFORMATION
  Report Type: Report from Study
  Country: US (occurrence: US)
  Receive Date: 20170511
  Receipt Date: 20170704
  Transmission Date: 20171127
  Serious: Yes (Death, Life-Threatening, Hospitalization, Disabling, Other)
  Sender: FDA-Public Use
  Company Number: PHEH2017US013980

PATIENT
  Age: 67 Year
  Sex: Female
  Weight: 60.5 kg

DRUGS (1)
  1. VOTRIENT [Suspect]
     Active Substance: PAZOPANIB HYDROCHLORIDE
     Indication: RENAL CELL CARCINOMA
     Dosage: 800 MG, QD
     Route: 048
     Dates: start: 20170310, end: 20170423

REACTIONS (12)
  - Cough [Unknown]
  - Respiratory failure [Not Recovered/Not Resolved]
  - Metastases to abdominal wall [Unknown]
  - Metastases to lung [Unknown]
  - Hypertension [Unknown]
  - Death [Fatal]
  - Dyspnoea [Unknown]
  - Left ventricular failure [Recovered/Resolved]
  - Metastases to heart [Unknown]
  - Ejection fraction decreased [Unknown]
  - Sepsis [Not Recovered/Not Resolved]
  - Transaminases increased [Not Recovered/Not Resolved]

NARRATIVE: CASE EVENT DATE: 20170418
